FAERS Safety Report 14089757 (Version 1)
Quarter: 2017Q4

REPORT INFORMATION
  Report Type: Spontaneous
  Country: US (occurrence: US)
  Receive Date: 20171014
  Receipt Date: 20171014
  Transmission Date: 20180321
  Serious: No
  Sender: FDA-Public Use
  Company Number: US-SA-2017SA169359

PATIENT
  Sex: Male

DRUGS (7)
  1. DETROL [Concomitant]
     Active Substance: TOLTERODINE TARTRATE
     Route: 065
  2. LISINOPRIL. [Concomitant]
     Active Substance: LISINOPRIL
  3. ZOLPIDEM TARTRATE. [Concomitant]
     Active Substance: ZOLPIDEM TARTRATE
     Route: 065
  4. ASPIRIN. [Concomitant]
     Active Substance: ASPIRIN
     Route: 065
  5. HYDROCHLOROTHIAZIDE. [Concomitant]
     Active Substance: HYDROCHLOROTHIAZIDE
  6. TAMSULOSIN [Concomitant]
     Active Substance: TAMSULOSIN
  7. AUBAGIO [Suspect]
     Active Substance: TERIFLUNOMIDE
     Indication: MULTIPLE SCLEROSIS
     Route: 048
     Dates: start: 201610

REACTIONS (3)
  - Drug ineffective [Unknown]
  - Vibratory sense increased [Unknown]
  - Musculoskeletal discomfort [Unknown]
